FAERS Safety Report 7770828-9 (Version None)
Quarter: 2011Q3

REPORT INFORMATION
  Report Type: 
  Country: None (occurrence: None)
  Receive Date: 20110922
  Receipt Date: 20110318
  Transmission Date: 20111222
  Serious: No
  Sender: FDA-Public Use
  Company Number: US-ASTRAZENECA-2011SE15497

PATIENT
  Age: 26 Year
  Sex: Female
  Weight: 54.4 kg

DRUGS (3)
  1. CELEXA [Concomitant]
  2. SEROQUEL [Suspect]
     Indication: SCHIZOAFFECTIVE DISORDER
     Route: 048
     Dates: start: 19980101, end: 20020101
  3. DEPAKOTE ER [Concomitant]

REACTIONS (10)
  - INSOMNIA [None]
  - DRUG DOSE OMISSION [None]
  - NAUSEA [None]
  - WEIGHT INCREASED [None]
  - SOMNOLENCE [None]
  - FOOD CRAVING [None]
  - HALLUCINATIONS, MIXED [None]
  - IMPAIRED WORK ABILITY [None]
  - MUSCLE TWITCHING [None]
  - HYDROPHOBIA [None]
